FAERS Safety Report 18735156 (Version 1)
Quarter: 2021Q1

REPORT INFORMATION
  Report Type: Spontaneous
  Country: JP (occurrence: JP)
  Receive Date: 20210113
  Receipt Date: 20210113
  Transmission Date: 20210419
  Serious: Yes (Other)
  Sender: FDA-Public Use
  Company Number: JP-PFIZER INC-2021003983

PATIENT
  Age: 62 Year
  Sex: Female

DRUGS (6)
  1. HYDROCORTISONE. [Suspect]
     Active Substance: HYDROCORTISONE
     Dosage: 50 MG PER DAY TAPERED TO 30 MG PER DAY WITHIN 1 WEEK
     Route: 048
  2. HYDROCORTISONE. [Suspect]
     Active Substance: HYDROCORTISONE
     Dosage: 15 MG IN THE MORNING ON ARISING AND 5 MG LATE IN THE DAY
     Route: 048
  3. AMLODIPINE BESYLATE. [Concomitant]
     Active Substance: AMLODIPINE BESYLATE
     Indication: HYPERTENSION
     Dosage: UNK
  4. CELECOXIB. [Concomitant]
     Active Substance: CELECOXIB
     Indication: ARTHROPATHY
     Dosage: 200 MG, DAILY
     Route: 048
  5. HYDROCORTISONE. [Suspect]
     Active Substance: HYDROCORTISONE
     Indication: ADRENAL INSUFFICIENCY
     Dosage: 150 MG PER DAY TAPERED TO 75 MG PER DAY WITHIN 3 DAYS
  6. SITAGLIPTIN [Concomitant]
     Active Substance: SITAGLIPTIN
     Indication: TYPE 2 DIABETES MELLITUS
     Dosage: UNK

REACTIONS (1)
  - Seronegative arthritis [Recovering/Resolving]
